FAERS Safety Report 6471473-8 (Version None)
Quarter: 2009Q4

REPORT INFORMATION
  Report Type: 
  Country: None (occurrence: None)
  Receive Date: 20091203
  Receipt Date: 20080325
  Transmission Date: 20100525
  Serious: Yes (Hospitalization, Other)
  Sender: FDA-Public Use
  Company Number: US-ELI_LILLY_AND_COMPANY-US200802006276

PATIENT
  Sex: Male

DRUGS (10)
  1. HUMALOG [Suspect]
     Indication: TYPE 2 DIABETES MELLITUS
     Dosage: 38 U, 2/D
  2. LANTUS [Concomitant]
  3. PREDNISONE [Concomitant]
     Dosage: 5 MG, DAILY (1/D)
  4. COUMADIN [Concomitant]
  5. FERROUS SULFATE TAB [Concomitant]
     Dosage: 324 MG, 2/D
  6. FUROSEMIDE [Concomitant]
     Dosage: 20 MG, DAILY (1/D)
  7. DIGOXIN [Concomitant]
     Dosage: 0.125 MG, DAILY (1/D)
  8. SPIRONOLACTONE [Concomitant]
     Dosage: 25 MG, DAILY (1/D)
  9. POTASSIUM CHLORIDE [Concomitant]
     Dosage: 20 MEQ, DAILY (1/D)
  10. ASPIRIN [Concomitant]

REACTIONS (8)
  - BLOOD PRESSURE DECREASED [None]
  - BLOOD SODIUM INCREASED [None]
  - HAEMOGLOBIN DECREASED [None]
  - HAEMORRHAGE [None]
  - HEART RATE INCREASED [None]
  - INTERNATIONAL NORMALISED RATIO INCREASED [None]
  - IRON DEFICIENCY ANAEMIA [None]
  - RESPIRATORY RATE INCREASED [None]
